FAERS Safety Report 15159912 (Version 4)
Quarter: 2019Q2

REPORT INFORMATION
  Report Type: Spontaneous
  Country: US (occurrence: US)
  Receive Date: 20180718
  Receipt Date: 20190627
  Transmission Date: 20190711
  Serious: No
  Sender: FDA-Public Use
  Company Number: US-PFIZER INC-2018290409

PATIENT
  Age: 88 Year
  Sex: Female

DRUGS (1)
  1. XELJANZ [Suspect]
     Active Substance: TOFACITINIB CITRATE
     Indication: RHEUMATOID ARTHRITIS
     Dosage: 5 MG, TWICE DAILY
     Route: 048
     Dates: start: 20180619

REACTIONS (5)
  - Herpes zoster [Unknown]
  - Pain in extremity [Unknown]
  - Back pain [Unknown]
  - Musculoskeletal stiffness [Unknown]
  - Muscle spasms [Unknown]

NARRATIVE: CASE EVENT DATE: 201807
